FAERS Safety Report 12550826 (Version 1)
Quarter: 2016Q3

REPORT INFORMATION
  Report Type: Spontaneous
  Country: US (occurrence: US)
  Receive Date: 20160712
  Receipt Date: 20160712
  Transmission Date: 20161109
  Serious: No
  Sender: FDA-Public Use
  Company Number: US-009507513-1607USA001410

PATIENT
  Sex: Female

DRUGS (2)
  1. NEXPLANON [Suspect]
     Active Substance: ETONOGESTREL
     Indication: CONTRACEPTION
     Dosage: 1 ROD/EVERY 3 YEARS
     Route: 059
     Dates: start: 20150902, end: 20160428
  2. NEXPLANON [Suspect]
     Active Substance: ETONOGESTREL
     Dosage: 1 ROD/EVERY 3 YEARS
     Route: 059
     Dates: start: 2016

REACTIONS (2)
  - Device breakage [Recovered/Resolved]
  - Limb discomfort [Recovered/Resolved]
